FAERS Safety Report 6068787-2 (Version None)
Quarter: 2009Q1

REPORT INFORMATION
  Report Type: 
  Country: None (occurrence: None)
  Receive Date: 20090206
  Receipt Date: 20090202
  Transmission Date: 20090719
  Serious: Yes (Hospitalization)
  Sender: FDA-Public Use
  Company Number: FR-AVENTIS-200910190FR

PATIENT
  Age: 76 Year
  Sex: Male

DRUGS (4)
  1. LANTUS [Suspect]
     Route: 058
     Dates: start: 20080201
  2. APIDRA [Suspect]
     Route: 058
     Dates: start: 20080201
  3. PREVISCAN                          /00789001/ [Concomitant]
     Indication: DRUG USE FOR UNKNOWN INDICATION
     Route: 048
     Dates: end: 20081101
  4. KARDEGIC                           /00002703/ [Concomitant]
     Indication: DRUG USE FOR UNKNOWN INDICATION
     Route: 048
     Dates: end: 20081101

REACTIONS (2)
  - ECZEMA [None]
  - PRURITUS [None]
